FAERS Safety Report 7592729-1 (Version None)
Quarter: 2011Q3

REPORT INFORMATION
  Report Type: 
  Country: None (occurrence: None)
  Receive Date: 20110706
  Receipt Date: 20110701
  Transmission Date: 20111222
  Serious: No
  Sender: FDA-Public Use
  Company Number: US-PFIZER INC-2008070408

PATIENT
  Sex: Male
  Weight: 88.44 kg

DRUGS (11)
  1. LIPITOR [Concomitant]
  2. VESICARE [Concomitant]
  3. WELLBUTRIN [Concomitant]
  4. VIAGRA [Suspect]
     Indication: ERECTILE DYSFUNCTION
     Dosage: 50 MG, AS NEEDED
     Route: 048
     Dates: start: 20070615
  5. VIAGRA [Suspect]
     Dosage: 100 MG, AS NEEDED
     Route: 048
     Dates: start: 20100610
  6. PENTOXIFYLLINE [Concomitant]
  7. GABAPENTIN [Concomitant]
     Indication: CARDIOVASCULAR DISORDER
  8. METOPROLOL TARTRATE [Concomitant]
     Dosage: 2.5 MG, 2X/DAY
  9. VIAGRA [Suspect]
     Dosage: UNK
     Route: 048
  10. KEPPRA [Concomitant]
  11. COPAXONE [Concomitant]

REACTIONS (1)
  - DRUG INEFFECTIVE [None]
